FAERS Safety Report 13977148 (Version 1)
Quarter: 2017Q3

REPORT INFORMATION
  Report Type: Spontaneous
  Country: US (occurrence: US)
  Receive Date: 20170915
  Receipt Date: 20170915
  Transmission Date: 20171128
  Serious: No
  Sender: FDA-Public Use
  Company Number: US-ROCHE-714573

PATIENT

DRUGS (3)
  1. FEMARA [Concomitant]
     Active Substance: LETROZOLE
     Route: 065
  2. AROMASIN [Concomitant]
     Active Substance: EXEMESTANE
     Route: 065
  3. TRASTUZUMAB. [Suspect]
     Active Substance: TRASTUZUMAB
     Indication: PRODUCT USED FOR UNKNOWN INDICATION
     Route: 065
     Dates: start: 200702, end: 200904

REACTIONS (5)
  - Dry mouth [Unknown]
  - Chills [Unknown]
  - Onychoclasis [Unknown]
  - Stomatitis [Unknown]
  - Influenza like illness [Unknown]
